FAERS Safety Report 8952579 (Version 1)
Quarter: 2012Q4

REPORT INFORMATION
  Report Type: Report from Study
  Country: CH (occurrence: US)
  Receive Date: 20121205
  Receipt Date: 20121205
  Transmission Date: 20130627
  Serious: Yes (Hospitalization)
  Sender: FDA-Public Use
  Company Number: US-BRISTOL-MYERS SQUIBB COMPANY-17158247

PATIENT
  Sex: Male
  Weight: 83 kg

DRUGS (4)
  1. CETUXIMAB [Suspect]
     Indication: HEAD AND NECK CANCER
     Dosage: last dose: 24Feb10.Planned on 09mar2010 was held.
     Dates: start: 20100126, end: 20100309
  2. CISPLATIN [Suspect]
     Indication: HEAD AND NECK CANCER
     Dosage: 2nd dose:24Feb10:50mg/m2
     Dates: start: 20100126
  3. BEVACIZUMAB [Suspect]
     Indication: HEAD AND NECK CANCER
     Dosage: last dose:24Feb10
     Dates: start: 20100126
  4. ZOFRAN [Suspect]

REACTIONS (10)
  - Constipation [Recovered/Resolved]
  - Vomiting [Recovered/Resolved]
  - Dysphagia [Not Recovered/Not Resolved]
  - Nausea [Recovered/Resolved]
  - Dehydration [Recovered/Resolved]
  - Diarrhoea [Recovered/Resolved]
  - Pyrexia [Recovered/Resolved]
  - Mucosal inflammation [Unknown]
  - Haemoglobin decreased [Unknown]
  - Weight decreased [Unknown]
